FAERS Safety Report 7952808-3 (Version None)
Quarter: 2011Q4

REPORT INFORMATION
  Report Type: 
  Country: None (occurrence: None)
  Receive Date: 20111201
  Receipt Date: 20111121
  Transmission Date: 20120403
  Serious: Yes (Hospitalization)
  Sender: FDA-Public Use
  Company Number: DE-ELI_LILLY_AND_COMPANY-DE201111006549

PATIENT
  Age: 75 Year
  Sex: Female

DRUGS (3)
  1. TARGIN [Concomitant]
  2. FORTEO [Suspect]
     Indication: OSTEOPOROSIS
     Dosage: UNK, QD
     Route: 058
     Dates: start: 20110428
  3. NOVAMINSULFON [Concomitant]

REACTIONS (1)
  - INTESTINAL OBSTRUCTION [None]
